FAERS Safety Report 5469527-8 (Version None)
Quarter: 2007Q3

REPORT INFORMATION
  Report Type: 
  Country: None (occurrence: None)
  Receive Date: 20070927
  Receipt Date: 20070925
  Transmission Date: 20080115
  Serious: Yes (Hospitalization)
  Sender: FDA-Public Use
  Company Number: B0484737A

PATIENT
  Age: 61 Year
  Sex: Female
  Weight: 55 kg

DRUGS (9)
  1. VALTREX [Suspect]
     Indication: HERPES ZOSTER
     Dosage: 1000MG THREE TIMES PER DAY
     Route: 048
     Dates: start: 20070820, end: 20070822
  2. LOXONIN [Suspect]
     Indication: HERPES ZOSTER
     Dosage: 60MG THREE TIMES PER DAY
     Route: 048
     Dates: start: 20070820, end: 20070822
  3. METHYCOBAL [Suspect]
     Indication: HERPES ZOSTER
     Dosage: 500MG THREE TIMES PER DAY
     Route: 048
     Dates: start: 20070820, end: 20070822
  4. MUCOSTA [Suspect]
     Indication: HERPES ZOSTER
     Dosage: 100MG THREE TIMES PER DAY
     Route: 048
     Dates: start: 20070820, end: 20070822
  5. PULMICORT [Concomitant]
     Indication: ASTHMA
     Dosage: 400MCG PER DAY
     Route: 055
  6. SEREVENT [Concomitant]
     Indication: ASTHMA
     Dosage: 100MCG PER DAY
     Route: 055
  7. ALLELOCK [Concomitant]
     Indication: ASTHMA
     Dosage: 10MG PER DAY
     Route: 048
  8. UNIPHYL [Concomitant]
     Indication: ASTHMA
     Dosage: 100MG PER DAY
     Route: 048
  9. PURSENNID [Concomitant]
     Indication: CONSTIPATION
     Dosage: 12MG PER DAY
     Route: 048

REACTIONS (4)
  - DYSPHORIA [None]
  - OLIGURIA [None]
  - RENAL FAILURE ACUTE [None]
  - VOMITING [None]
